FAERS Safety Report 5889590-X (Version None)
Quarter: 2008Q3

REPORT INFORMATION
  Report Type: 
  Country: None (occurrence: None)
  Receive Date: 20080919
  Receipt Date: 20080912
  Transmission Date: 20090109
  Serious: Yes (Hospitalization)
  Sender: FDA-Public Use
  Company Number: A0748263A

PATIENT
  Age: 70 Year
  Sex: Male
  Weight: 120.5 kg

DRUGS (10)
  1. AVANDIA [Suspect]
     Indication: DIABETES MELLITUS
     Dosage: 8MG PER DAY
     Route: 048
     Dates: start: 20040201, end: 20070320
  2. PROPRANOLOL [Concomitant]
     Dates: start: 19880101
  3. HYDROCHLOROTHIAZIDE [Concomitant]
     Dates: start: 19970101, end: 20070301
  4. XANAX [Concomitant]
     Dates: start: 19860101, end: 20050101
  5. FEXOFENADINE [Concomitant]
  6. TRIAMTERENE [Concomitant]
  7. ALLOPURINOL [Concomitant]
  8. METFORMIN HCL [Concomitant]
  9. LEVOTHYROXINE SODIUM [Concomitant]
  10. PRILOSEC [Concomitant]

REACTIONS (3)
  - CARDIAC FAILURE [None]
  - HEART INJURY [None]
  - RENAL FAILURE [None]
